FAERS Safety Report 15220395 (Version 1)
Quarter: 2018Q3

REPORT INFORMATION
  Report Type: Spontaneous
  Country: US (occurrence: US)
  Receive Date: 20180703
  Receipt Date: 20180703
  Transmission Date: 20181010
  Serious: Yes (Death, Life-Threatening, Hospitalization)
  Sender: FDA-Public Use
  Company Number: None

PATIENT
  Age: 57 Year
  Sex: Female
  Weight: 90 kg

DRUGS (2)
  1. ENOXAPARIN [Suspect]
     Active Substance: ENOXAPARIN
     Route: 058
     Dates: start: 20180305, end: 20180309
  2. WARFARIN [Suspect]
     Active Substance: WARFARIN
     Route: 048
     Dates: start: 20180305, end: 20180308

REACTIONS (13)
  - Pneumonia klebsiella [None]
  - Hepatic encephalopathy [None]
  - Supraventricular tachycardia [None]
  - Pathogen resistance [None]
  - Fluid overload [None]
  - Dyspnoea [None]
  - Unresponsive to stimuli [None]
  - Hypotension [None]
  - Retroperitoneal haematoma [None]
  - PCO2 increased [None]
  - Haemoglobin decreased [None]
  - Urinary tract infection [None]
  - Respiratory failure [None]

NARRATIVE: CASE EVENT DATE: 20180315
